FAERS Safety Report 13002690 (Version 3)
Quarter: 2017Q1

REPORT INFORMATION
  Report Type: Spontaneous
  Country: RO (occurrence: RO)
  Receive Date: 20161206
  Receipt Date: 20170117
  Transmission Date: 20170428
  Serious: Yes (Other)
  Sender: FDA-Public Use
  Company Number: RO-JNJFOC-20161203135

PATIENT

DRUGS (2)
  1. RISPERIDONE. [Suspect]
     Active Substance: RISPERIDONE
     Indication: BIPOLAR DISORDER
     Dosage: 2-4 MG
     Route: 065
  2. RISPERIDONE. [Suspect]
     Active Substance: RISPERIDONE
     Indication: SCHIZOPHRENIA
     Dosage: 2-4 MG
     Route: 065

REACTIONS (30)
  - Arrhythmia [Unknown]
  - Tachycardia [Unknown]
  - Treatment noncompliance [Unknown]
  - Electrocardiogram QT prolonged [Unknown]
  - Dysmenorrhoea [Unknown]
  - Blood triglycerides abnormal [Unknown]
  - Cognitive disorder [Unknown]
  - Akathisia [Unknown]
  - Constipation [Unknown]
  - Headache [Unknown]
  - Rash [Unknown]
  - Aggression [Unknown]
  - Extrapyramidal disorder [Unknown]
  - Suicidal ideation [Unknown]
  - Blood bilirubin increased [Unknown]
  - Blood glucose increased [Unknown]
  - Insomnia [Unknown]
  - Weight increased [Unknown]
  - Total cholesterol/HDL ratio abnormal [Unknown]
  - Blood insulin increased [Unknown]
  - Somnolence [Unknown]
  - Body mass index increased [Unknown]
  - Vomiting [Unknown]
  - Agitation [Unknown]
  - Diarrhoea [Unknown]
  - Anxiety [Unknown]
  - Weight decreased [Unknown]
  - Nausea [Unknown]
  - Amenorrhoea [Unknown]
  - Orthostatic hypotension [Unknown]
